FAERS Safety Report 23521754 (Version 1)
Quarter: 2024Q1

REPORT INFORMATION
  Report Type: Spontaneous
  Country: US (occurrence: None)
  Receive Date: 20240213
  Receipt Date: 20240213
  Transmission Date: 20240409
  Serious: Yes (Other)
  Sender: FDA-Public Use
  Company Number: None

PATIENT
  Age: 68 Year
  Sex: Female
  Weight: 47.7 kg

DRUGS (3)
  1. ROCKLATAN [Suspect]
     Active Substance: LATANOPROST\NETARSUDIL MESYLATE
     Indication: Glaucoma
     Dosage: AT BEDTI ME OPHTHALMIC
     Route: 047
     Dates: start: 20240209, end: 20240212
  2. LUMIGAN [Concomitant]
     Active Substance: BIMATOPROST
  3. ATORVASTATIN [Concomitant]
     Active Substance: ATORVASTATIN

REACTIONS (5)
  - Headache [None]
  - Ocular hyperaemia [None]
  - Swelling of eyelid [None]
  - Pruritus [None]
  - Vision blurred [None]

NARRATIVE: CASE EVENT DATE: 20240210
